FAERS Safety Report 19168854 (Version 1)
Quarter: 2021Q2

REPORT INFORMATION
  Report Type: Spontaneous
  Country: US (occurrence: US)
  Receive Date: 20210422
  Receipt Date: 20210422
  Transmission Date: 20210717
  Serious: Yes (Hospitalization, Other)
  Sender: FDA-Public Use
  Company Number: US-ELI_LILLY_AND_COMPANY-US202104007459

PATIENT
  Sex: Male

DRUGS (8)
  1. ATENOLOL. [Concomitant]
     Active Substance: ATENOLOL
     Indication: HYPERTENSION
  2. BAMLANIVIMAB 700MG [Suspect]
     Active Substance: BAMLANIVIMAB
     Indication: COVID-19
     Dosage: 700 MG, SINGLE
     Route: 042
     Dates: start: 20210226
  3. ATENOLOL. [Concomitant]
     Active Substance: ATENOLOL
     Indication: STRESS
  4. SYNTHROID [Concomitant]
     Active Substance: LEVOTHYROXINE SODIUM
     Indication: HYPOTHYROIDISM
  5. LOPRESSOR [Concomitant]
     Active Substance: METOPROLOL TARTRATE
     Indication: HYPERTENSION
  6. ALFUZOSIN [Concomitant]
     Active Substance: ALFUZOSIN
     Indication: PRODUCT USED FOR UNKNOWN INDICATION
  7. ATENOLOL. [Concomitant]
     Active Substance: ATENOLOL
     Indication: ATRIAL FIBRILLATION
  8. ELIQUIS [Concomitant]
     Active Substance: APIXABAN
     Indication: THROMBOSIS

REACTIONS (10)
  - Knee deformity [Not Recovered/Not Resolved]
  - Cardiac disorder [Unknown]
  - COVID-19 [Recovering/Resolving]
  - Mobility decreased [Not Recovered/Not Resolved]
  - Thrombosis [Recovering/Resolving]
  - Infection [Unknown]
  - Blood pressure fluctuation [Unknown]
  - Intestinal obstruction [Unknown]
  - Atrial fibrillation [Unknown]
  - Orthostatic hypotension [Unknown]
